FAERS Safety Report 13213774 (Version 1)
Quarter: 2017Q1

REPORT INFORMATION
  Report Type: Spontaneous
  Country: US (occurrence: US)
  Receive Date: 20170209
  Receipt Date: 20170209
  Transmission Date: 20170428
  Serious: No
  Sender: FDA-Public Use
  Company Number: US-ALLERGAN-1666008US

PATIENT
  Age: 59 Year
  Sex: Female

DRUGS (4)
  1. BOTOX [Suspect]
     Active Substance: ONABOTULINUMTOXINA
     Dosage: UNK, SINGLE
     Route: 030
     Dates: start: 20160422, end: 20160422
  2. BOTOX [Suspect]
     Active Substance: ONABOTULINUMTOXINA
     Indication: TORTICOLLIS
     Dosage: UNK, SINGLE
     Route: 030
     Dates: start: 20160122, end: 20160122
  3. TRAZODONE [Concomitant]
     Active Substance: TRAZODONE HYDROCHLORIDE
     Indication: INSOMNIA
     Dosage: 100 MG, QD
     Route: 048
  4. WELLBUTRIN [Concomitant]
     Active Substance: BUPROPION HYDROCHLORIDE
     Indication: SEASONAL AFFECTIVE DISORDER
     Dosage: 100 MG, QD
     Route: 048

REACTIONS (7)
  - Muscular weakness [Not Recovered/Not Resolved]
  - Gait disturbance [Not Recovered/Not Resolved]
  - Suicidal ideation [Recovered/Resolved]
  - Hypokinesia [Recovered/Resolved]
  - Dysstasia [Not Recovered/Not Resolved]
  - Pain [Not Recovered/Not Resolved]
  - Crying [Recovered/Resolved]

NARRATIVE: CASE EVENT DATE: 20160424
